FAERS Safety Report 6360942-7 (Version None)
Quarter: 2009Q3

REPORT INFORMATION
  Report Type: 
  Country: None (occurrence: None)
  Receive Date: 20090918
  Receipt Date: 20090909
  Transmission Date: 20100115
  Serious: Yes (Hospitalization, Other)
  Sender: FDA-Public Use
  Company Number: PHHO2009US02592

PATIENT
  Sex: Male
  Weight: 85.9 kg

DRUGS (27)
  1. RAD 666 RAD+TAB [Suspect]
     Indication: RENAL TRANSPLANT
     Dosage: 0.75 MG, QD
     Route: 048
     Dates: start: 19990120
  2. RAD 666 RAD+TAB [Suspect]
     Dosage: 1.5 MG, BID
     Route: 048
     Dates: start: 20030101
  3. ANALGESICS [Suspect]
  4. MUSCLE RELAXANTS [Suspect]
  5. PREDNISONE [Concomitant]
     Indication: RENAL TRANSPLANT
     Dosage: 5 MG EVERY OTHER DAY
  6. GENGRAF [Concomitant]
     Indication: RENAL TRANSPLANT
     Dosage: 75 MG  DAILY
  7. OMEPRAZOLE [Concomitant]
  8. WELLBUTRIN [Concomitant]
  9. FLEXERIL [Concomitant]
  10. ALLOPURINOL [Concomitant]
  11. PERCOCET [Concomitant]
  12. DILAUDID [Concomitant]
  13. FOSAMAX [Concomitant]
  14. COLACE [Concomitant]
  15. ROCALTROL [Concomitant]
  16. WARFARIN SODIUM [Concomitant]
  17. DIGOXIN [Concomitant]
  18. ZETIA [Concomitant]
  19. FUROSEMIDE [Concomitant]
  20. TUSSIONEX [Concomitant]
  21. FLOMAX [Concomitant]
  22. TOPROL-XL [Concomitant]
  23. MULTI-VITAMINS [Concomitant]
  24. NIACIN [Concomitant]
  25. TOBRADEX [Concomitant]
  26. DESYREL [Concomitant]
  27. VALIUM [Concomitant]

REACTIONS (18)
  - ATRIAL FIBRILLATION [None]
  - ATRIAL FLUTTER [None]
  - CANCER PAIN [None]
  - CARCINOMA IN SITU OF EYE [None]
  - CONCOMITANT DISEASE PROGRESSION [None]
  - DYSARTHRIA [None]
  - EPISTAXIS [None]
  - FATIGUE [None]
  - INFECTION [None]
  - MENTAL STATUS CHANGES [None]
  - OEDEMA PERIPHERAL [None]
  - PALPITATIONS [None]
  - PNEUMONIA [None]
  - PRODUCTIVE COUGH [None]
  - PYREXIA [None]
  - SKIN CANCER METASTATIC [None]
  - SQUAMOUS CELL CARCINOMA OF SKIN [None]
  - VISION BLURRED [None]
